FAERS Safety Report 9146298 (Version 1)
Quarter: 2013Q1

REPORT INFORMATION
  Report Type: Spontaneous
  Country: NO (occurrence: NO)
  Receive Date: 20130307
  Receipt Date: 20130307
  Transmission Date: 20140127
  Serious: Yes (Other)
  Sender: FDA-Public Use
  Company Number: NO-BAYER-2013-026045

PATIENT
  Age: 30 Year
  Sex: Female

DRUGS (3)
  1. DIANE [Suspect]
     Indication: MENSTRUATION IRREGULAR
     Route: 048
  2. YASMIN [Suspect]
     Route: 048
  3. MICROGYNON [Concomitant]

REACTIONS (2)
  - Colitis ulcerative [None]
  - Off label use [None]
